FAERS Safety Report 23632981 (Version 1)
Quarter: 2024Q1

REPORT INFORMATION
  Report Type: Spontaneous
  Country: US (occurrence: US)
  Receive Date: 20240314
  Receipt Date: 20240314
  Transmission Date: 20240410
  Serious: Yes (Hospitalization, Other)
  Sender: FDA-Public Use
  Company Number: US-AMGEN-USASP2024048511

PATIENT
  Age: 70 Year
  Sex: Male

DRUGS (3)
  1. BEVACIZUMAB [Suspect]
     Active Substance: BEVACIZUMAB
     Indication: Non-small cell lung cancer stage IV
     Dosage: UNK
     Route: 065
  2. SULFAMETHOXAZOLE\TRIMETHOPRIM [Concomitant]
     Active Substance: SULFAMETHOXAZOLE\TRIMETHOPRIM
     Indication: Prophylaxis
     Dosage: UNK
  3. LORLATINIB [Concomitant]
     Active Substance: LORLATINIB
     Indication: Non-small cell lung cancer stage IV

REACTIONS (6)
  - Eczema weeping [Recovered/Resolved]
  - Toxic erythema of chemotherapy [Recovered/Resolved]
  - Herpes zoster disseminated [Recovered/Resolved]
  - Pseudomonas infection [Recovered/Resolved]
  - Infected vasculitis [Recovered/Resolved]
  - Eczema herpeticum [Recovered/Resolved]
